FAERS Safety Report 13859969 (Version 1)
Quarter: 2017Q3

REPORT INFORMATION
  Report Type: Spontaneous
  Country: US (occurrence: US)
  Receive Date: 20170811
  Receipt Date: 20170811
  Transmission Date: 20171127
  Serious: Yes (Hospitalization)
  Sender: FDA-Public Use
  Company Number: None

PATIENT
  Age: 72 Year
  Sex: Male

DRUGS (18)
  1. LEVOFLOXACIN. [Concomitant]
     Active Substance: LEVOFLOXACIN
  2. MIDODRINE [Concomitant]
     Active Substance: MIDODRINE
  3. ALLOPURINOL. [Concomitant]
     Active Substance: ALLOPURINOL
  4. PROPAFENONE. [Concomitant]
     Active Substance: PROPAFENONE
  5. RYTARY [Concomitant]
     Active Substance: CARBIDOPA\LEVODOPA
  6. PAROXETINE. [Concomitant]
     Active Substance: PAROXETINE
  7. MELOXICAM. [Concomitant]
     Active Substance: MELOXICAM
  8. ZOLPIDEM [Concomitant]
     Active Substance: ZOLPIDEM\ZOLPIDEM TARTRATE
  9. TAMSULOSIN [Concomitant]
     Active Substance: TAMSULOSIN
  10. ATORVASTATIN [Concomitant]
     Active Substance: ATORVASTATIN
  11. LINZESS [Concomitant]
     Active Substance: LINACLOTIDE
  12. FLUDROCORT [Concomitant]
  13. SUMATRIPTAN. [Concomitant]
     Active Substance: SUMATRIPTAN
  14. SUMATRIPTAN. [Concomitant]
     Active Substance: SUMATRIPTAN
  15. METHYPRED [Concomitant]
  16. PANTOPRAZOLE [Concomitant]
     Active Substance: PANTOPRAZOLE
  17. TETRABENAZINE. [Suspect]
     Active Substance: TETRABENAZINE
     Indication: ORTHOSTATIC HYPOTENSION
     Route: 048
     Dates: start: 20170613
  18. LYRICA [Concomitant]
     Active Substance: PREGABALIN

REACTIONS (1)
  - Hospitalisation [None]

NARRATIVE: CASE EVENT DATE: 2017
